FAERS Safety Report 11898343 (Version 2)
Quarter: 2016Q1

REPORT INFORMATION
  Report Type: Spontaneous
  Country: US (occurrence: US)
  Receive Date: 20160108
  Receipt Date: 20160318
  Transmission Date: 20160526
  Serious: Yes (Hospitalization, Disabling)
  Sender: FDA-Public Use
  Company Number: US-ENDO PHARMACEUTICALS INC.-2016-000074

PATIENT
  Age: 53 Year
  Sex: Male
  Weight: 97.16 kg

DRUGS (1)
  1. TESTIM [Suspect]
     Active Substance: TESTOSTERONE
     Indication: ANDROGEN REPLACEMENT THERAPY
     Route: 062
     Dates: start: 20100615, end: 20110522

REACTIONS (5)
  - Coronary artery disease [Unknown]
  - Type 2 diabetes mellitus [Unknown]
  - Cerebrovascular accident [Not Recovered/Not Resolved]
  - Cardiomegaly [Unknown]
  - Cardiac failure congestive [Unknown]

NARRATIVE: CASE EVENT DATE: 20110522
